FAERS Safety Report 5394172-2 (Version None)
Quarter: 2007Q3

REPORT INFORMATION
  Report Type: 
  Country: None (occurrence: None)
  Receive Date: 20070723
  Receipt Date: 20070718
  Transmission Date: 20080115
  Serious: Yes (Death, Other)
  Sender: FDA-Public Use
  Company Number: GB-ASTRAZENECA-2007GB01423

PATIENT
  Age: 36 Year
  Sex: Female

DRUGS (4)
  1. GOSERELIN [Suspect]
     Indication: ENDOMETRIOSIS
     Route: 058
     Dates: start: 20050801
  2. CITALOPRAM [Concomitant]
     Indication: DEPRESSION
     Route: 048
     Dates: start: 20070601
  3. LORAZEPAM [Concomitant]
     Indication: ANXIETY
     Route: 048
     Dates: start: 20070601
  4. LORAZEPAM [Concomitant]
     Indication: DEPRESSION
     Route: 048
     Dates: start: 20070601

REACTIONS (2)
  - COMPLETED SUICIDE [None]
  - DEPRESSION [None]
